FAERS Safety Report 22389421 (Version 2)
Quarter: 2023Q2

REPORT INFORMATION
  Report Type: Spontaneous
  Country: US (occurrence: US)
  Receive Date: 20230531
  Receipt Date: 20230531
  Transmission Date: 20230721
  Serious: No
  Sender: FDA-Public Use
  Company Number: US-Dermavant-000617

PATIENT

DRUGS (1)
  1. VTAMA [Suspect]
     Active Substance: TAPINAROF
     Dosage: AREA OF APPLICATION: KNEE
     Route: 061
     Dates: start: 20230306

REACTIONS (3)
  - Application site erythema [Unknown]
  - Application site folliculitis [Unknown]
  - Application site inflammation [Unknown]
